FAERS Safety Report 11496783 (Version 3)
Quarter: 2020Q1

REPORT INFORMATION
  Report Type: Spontaneous
  Country: US (occurrence: US)
  Receive Date: 20150911
  Receipt Date: 20200203
  Transmission Date: 20200409
  Serious: Yes (Death, Hospitalization, Other)
  Sender: FDA-Public Use
  Company Number: US-JNJFOC-20150819775

PATIENT
  Age: 85 Year
  Sex: Female

DRUGS (13)
  1. COUMADIN [Suspect]
     Active Substance: WARFARIN SODIUM
     Indication: ATRIAL FIBRILLATION
     Dates: start: 2009, end: 201409
  2. CARVEDILOL. [Concomitant]
     Active Substance: CARVEDILOL
     Route: 065
     Dates: start: 2000
  3. MIRALAX [Concomitant]
     Active Substance: POLYETHYLENE GLYCOL 3350
     Route: 065
  4. SENNA [Concomitant]
     Active Substance: SENNA LEAF\SENNOSIDES\SENNOSIDES A AND B
     Route: 065
  5. CLARITIN [Concomitant]
     Active Substance: LORATADINE
     Route: 065
     Dates: start: 2000
  6. XARELTO [Suspect]
     Active Substance: RIVAROXABAN
     Indication: CEREBROVASCULAR ACCIDENT PROPHYLAXIS
     Route: 048
     Dates: start: 201409, end: 20141104
  7. DIGOXIN. [Concomitant]
     Active Substance: DIGOXIN
     Route: 065
     Dates: start: 2014
  8. LORAZEPAM. [Concomitant]
     Active Substance: LORAZEPAM
     Route: 065
  9. LASIX [Concomitant]
     Active Substance: FUROSEMIDE
     Route: 065
     Dates: start: 2000
  10. POTASSIUM [Concomitant]
     Active Substance: POTASSIUM
     Route: 065
     Dates: start: 2000
  11. XARELTO [Suspect]
     Active Substance: RIVAROXABAN
     Indication: EMBOLISM
  12. XARELTO [Suspect]
     Active Substance: RIVAROXABAN
     Indication: ATRIAL FIBRILLATION
  13. SYNTHROID [Concomitant]
     Active Substance: LEVOTHYROXINE SODIUM
     Route: 065

REACTIONS (3)
  - Gastrointestinal haemorrhage [Recovered/Resolved]
  - Haemorrhoidal haemorrhage [Unknown]
  - Blood loss anaemia [Unknown]

NARRATIVE: CASE EVENT DATE: 201409
